FAERS Safety Report 17022814 (Version 5)
Quarter: 2020Q4

REPORT INFORMATION
  Report Type: Report from Study
  Country: BR (occurrence: BR)
  Receive Date: 20191112
  Receipt Date: 20201029
  Transmission Date: 20210113
  Serious: Yes (Other)
  Sender: FDA-Public Use
  Company Number: NVSC2019BR031038

PATIENT
  Age: 56 Year
  Sex: Female

DRUGS (4)
  1. GILENYA [Suspect]
     Active Substance: FINGOLIMOD HYDROCHLORIDE
     Dosage: UNK
     Route: 065
  2. GILENYA [Suspect]
     Active Substance: FINGOLIMOD HYDROCHLORIDE
     Indication: MULTIPLE SCLEROSIS
     Dosage: UNK (APRIL OR MAY 2018)
     Route: 065
     Dates: start: 2018
  3. GILENYA [Suspect]
     Active Substance: FINGOLIMOD HYDROCHLORIDE
     Dosage: UNK
     Route: 065
  4. GILENYA [Suspect]
     Active Substance: FINGOLIMOD HYDROCHLORIDE
     Dosage: UNK
     Route: 065
     Dates: start: 20190122

REACTIONS (9)
  - Lymphocyte count abnormal [Recovered/Resolved]
  - Fatigue [Unknown]
  - Depression [Recovering/Resolving]
  - Leukopenia [Recovered/Resolved]
  - Muscle strength abnormal [Recovering/Resolving]
  - Lymphocyte count decreased [Unknown]
  - Stress [Unknown]
  - Weight decreased [Recovering/Resolving]
  - Visual impairment [Unknown]

NARRATIVE: CASE EVENT DATE: 20190510
